FAERS Safety Report 8549316 (Version 3)
Quarter: 2012Q4

REPORT INFORMATION
  Report Type: Report from Study
  Country: US (occurrence: US)
  Receive Date: 20120507
  Receipt Date: 20120922
  Transmission Date: 20130627
  Serious: Yes (Disabling, Other)
  Sender: FDA-Public Use
  Company Number: US-ABBOTT-12P-163-0930174-00

PATIENT
  Age: 52 None
  Sex: Female
  Weight: 92.16 kg

DRUGS (10)
  1. HUMIRA 40 MG/0.8 ML PEN [Suspect]
     Indication: RHEUMATOID ARTHRITIS
     Route: 058
     Dates: start: 2004
  2. OMEPRAZOLE [Concomitant]
     Indication: GASTRIC DISORDER
     Route: 048
  3. CELEXA [Concomitant]
     Indication: DEPRESSION
     Route: 048
  4. CELEBREX [Concomitant]
     Indication: RHEUMATOID ARTHRITIS
     Route: 048
  5. VESICARE [Concomitant]
     Indication: INCONTINENCE
  6. LEVOXYL [Concomitant]
     Indication: HYPOTHYROIDISM
  7. FOLIC ACID [Concomitant]
     Indication: RHEUMATOID ARTHRITIS
  8. VITAMIN D [Concomitant]
     Indication: RHEUMATOID ARTHRITIS
  9. VITAMIN B COMPLEX [Concomitant]
     Indication: RHEUMATOID ARTHRITIS
  10. CALCIUM [Concomitant]
     Indication: BONE DISORDER

REACTIONS (9)
  - Disability [Unknown]
  - Injury [Unknown]
  - Spinal operation [Unknown]
  - Spinal operation [Unknown]
  - Foot operation [Unknown]
  - Foot operation [Unknown]
  - Back pain [Unknown]
  - Hypertension [Unknown]
  - Surgery [Unknown]
